FAERS Safety Report 6052626-X (Version None)
Quarter: 2009Q1

REPORT INFORMATION
  Report Type: 
  Country: None (occurrence: None)
  Receive Date: 20090127
  Receipt Date: 20090115
  Transmission Date: 20090719
  Serious: Yes (Hospitalization, Other)
  Sender: FDA-Public Use
  Company Number: US-RANBAXY-2008US-19805

PATIENT

DRUGS (1)
  1. ISOTRETINOIN [Suspect]
     Indication: ACNE
     Dosage: 30 MG, QD
     Route: 048
     Dates: start: 20081103, end: 20081120

REACTIONS (10)
  - ARTHRALGIA [None]
  - BACK PAIN [None]
  - BLEPHARITIS [None]
  - CHEST DISCOMFORT [None]
  - CHEST PAIN [None]
  - DEPRESSION [None]
  - DRY EYE [None]
  - EAR PAIN [None]
  - HEADACHE [None]
  - MENSTRUATION IRREGULAR [None]
